FAERS Safety Report 19369833 (Version 1)
Quarter: 2021Q2

REPORT INFORMATION
  Report Type: Spontaneous
  Country: CA (occurrence: CA)
  Receive Date: 20210603
  Receipt Date: 20210603
  Transmission Date: 20210717
  Serious: Yes (Other)
  Sender: FDA-Public Use
  Company Number: CA-JNJFOC-20210555021

PATIENT
  Age: 38 Year
  Sex: Male
  Weight: 105 kg

DRUGS (4)
  1. REMICADE [Suspect]
     Active Substance: INFLIXIMAB
     Indication: COLITIS ULCERATIVE
     Route: 042
  2. ASACOL [Concomitant]
     Active Substance: MESALAMINE
     Route: 048
  3. MESALAZINE [Concomitant]
     Active Substance: MESALAMINE
  4. PREDNISONE. [Concomitant]
     Active Substance: PREDNISONE

REACTIONS (4)
  - Off label use [Unknown]
  - Somnolence [Unknown]
  - Condition aggravated [Unknown]
  - Inappropriate schedule of product administration [Unknown]
